FAERS Safety Report 6037935-2 (Version None)
Quarter: 2009Q1

REPORT INFORMATION
  Report Type: 
  Country: None (occurrence: None)
  Receive Date: 20090114
  Receipt Date: 20090114
  Transmission Date: 20090719
  Serious: Yes (Hospitalization)
  Sender: FDA-Public Use
  Company Number: None

PATIENT
  Sex: Female
  Weight: 69.4003 kg

DRUGS (1)
  1. ISOSORBIDE MFR- DR. REDDY'S 30 MG [Suspect]
     Dosage: 30 MG ONE DAILY
     Dates: start: 20080924, end: 20081002

REACTIONS (5)
  - BLOOD PRESSURE DECREASED [None]
  - DIZZINESS [None]
  - INCORRECT DOSE ADMINISTERED [None]
  - NAUSEA [None]
  - VISION BLURRED [None]
